FAERS Safety Report 14376018 (Version 3)
Quarter: 2018Q3

REPORT INFORMATION
  Report Type: Spontaneous
  Country: US (occurrence: US)
  Receive Date: 20180111
  Receipt Date: 20180702
  Transmission Date: 20181010
  Serious: Yes (Death)
  Sender: FDA-Public Use
  Company Number: US-CELLTRION INC.-2018US017217

PATIENT

DRUGS (18)
  1. TRAMADOL. [Concomitant]
     Active Substance: TRAMADOL
     Dosage: UNKEXTENDED RELEASE 24 HR
     Route: 048
     Dates: start: 20130129
  2. BENZONATATE. [Concomitant]
     Active Substance: BENZONATATE
     Dosage: TAKE 1 CAPSULE BY ORAL ROUTE 3 TIMES EVERY DAY AS NEEDED
     Route: 048
     Dates: start: 20130129
  3. METHOTREXATE SODIUM. [Concomitant]
     Active Substance: METHOTREXATE SODIUM
     Indication: RHEUMATIC DISORDER
     Dosage: 25 MG, 1/WEEK
     Route: 048
     Dates: start: 20170829
  4. CARVEDILOL. [Concomitant]
     Active Substance: CARVEDILOL
     Dosage: 11 DF, DAILY
     Route: 048
     Dates: start: 20130129
  5. NORCO [Concomitant]
     Active Substance: ACETAMINOPHEN\HYDROCODONE BITARTRATE
     Indication: PAIN
     Dosage: 10MG?325 MG, EVERY 4?6 HOURS AS NEEDED
     Route: 048
     Dates: start: 20130129
  6. FOLIC ACID. [Concomitant]
     Active Substance: FOLIC ACID
     Dosage: 1 DF, DAILY
     Route: 048
     Dates: start: 20170606
  7. PREDNISONE. [Concomitant]
     Active Substance: PREDNISONE
     Dosage: 1 TABLET
     Route: 048
     Dates: start: 20160427
  8. INFLECTRA [Suspect]
     Active Substance: INFLIXIMAB-DYYB
     Indication: PRODUCT USED FOR UNKNOWN INDICATION
     Dosage: 3 MG/KG
     Route: 065
  9. ATORVASTATIN [Concomitant]
     Active Substance: ATORVASTATIN
     Dosage: 20 MG, DAILY
     Route: 048
     Dates: start: 20130629
  10. FUROSEMIDE. [Concomitant]
     Active Substance: FUROSEMIDE
     Dosage: 1 DF, DAILY
     Dates: start: 20130129
  11. FOLIC ACID. [Concomitant]
     Active Substance: FOLIC ACID
     Dosage: 1 MG, DAILY
     Route: 048
     Dates: start: 20150630
  12. ANORO ELLIPTA [Concomitant]
     Active Substance: UMECLIDINIUM BROMIDE\VILANTEROL TRIFENATATE
     Dosage: UNK, DAILY
     Dates: start: 20160427
  13. TAMSULOSIN [Concomitant]
     Active Substance: TAMSULOSIN
     Dosage: 0.4 MG, DAILY, 1/ 2 HOUR FOLLOWING THE SAME MEAL EACH DAY
     Route: 048
     Dates: start: 20130129
  14. CLOPIDOGREL [Concomitant]
     Active Substance: CLOPIDOGREL BISULFATE
     Dosage: 1 DF, DAILY
     Route: 048
     Dates: start: 20130129
  15. REMICADE [Concomitant]
     Active Substance: INFLIXIMAB
     Indication: RHEUMATIC DISORDER
     Dosage: 5 MG/KG, EVERY 8 WEEKS
     Route: 065
  16. ENALAPRIL MALEATE. [Concomitant]
     Active Substance: ENALAPRIL MALEATE
     Dosage: 1 DF, DAILY
     Route: 048
     Dates: start: 20130129
  17. PROAIR RESPICLICK [Concomitant]
     Active Substance: ALBUTEROL SULFATE
     Dosage: NHALE 2 PUFF BY INHALATION ROUTE EVERY  4?6 AS NEEDED
     Dates: start: 20160427
  18. GABAPENTIN. [Concomitant]
     Active Substance: GABAPENTIN
     Dosage: 1 DF, BID AND 2 PO HS
     Route: 048
     Dates: start: 20170829

REACTIONS (10)
  - Neck pain [Unknown]
  - Back pain [Unknown]
  - Cough [Recovered/Resolved]
  - Myocardial infarction [Fatal]
  - Joint swelling [Unknown]
  - Cerebrovascular accident [Fatal]
  - Arthralgia [Unknown]
  - Muscle spasms [Unknown]
  - Muscular weakness [Unknown]
  - Memory impairment [Unknown]
